FAERS Safety Report 4991918-X (Version None)
Quarter: 2006Q2

REPORT INFORMATION
  Report Type: 
  Country: None (occurrence: None)
  Receive Date: 20060504
  Receipt Date: 20041012
  Transmission Date: 20061013
  Serious: Yes (Hospitalization)
  Sender: FDA-Public Use
  Company Number: US-MERCK-0410USA01762

PATIENT
  Age: 64 Year
  Sex: Female

DRUGS (10)
  1. VIOXX [Suspect]
     Indication: ARTHRITIS
     Route: 048
     Dates: start: 20000501, end: 20041001
  2. VIOXX [Suspect]
     Indication: BACK PAIN
     Route: 048
     Dates: start: 20000501, end: 20041001
  3. NEURONTIN [Concomitant]
     Route: 065
  4. ASPIRIN [Concomitant]
     Route: 065
  5. ALEVE [Concomitant]
     Route: 065
  6. TOPROL-XL [Concomitant]
     Route: 065
  7. ZOCOR [Concomitant]
     Route: 065
  8. PLAVIX [Concomitant]
     Route: 065
  9. [THERAPY UNSPECIFIED] [Concomitant]
     Route: 065
  10. XANAX [Concomitant]
     Route: 065

REACTIONS (5)
  - ANXIETY [None]
  - CORONARY ARTERY DISEASE [None]
  - DIABETES MELLITUS NON-INSULIN-DEPENDENT [None]
  - HYPERTENSION [None]
  - MYOCARDIAL INFARCTION [None]
